FAERS Safety Report 13812168 (Version 3)
Quarter: 2018Q1

REPORT INFORMATION
  Report Type: Report from Study
  Country: US (occurrence: US)
  Receive Date: 20170728
  Receipt Date: 20180125
  Transmission Date: 20180508
  Serious: No
  Sender: FDA-Public Use
  Company Number: US-AMGEN-USASL2017098418

PATIENT
  Age: 55 Year
  Sex: Male

DRUGS (1)
  1. REPATHA [Suspect]
     Active Substance: EVOLOCUMAB
     Indication: BLOOD CHOLESTEROL INCREASED
     Dosage: 140 MG, Q2WK
     Route: 065
     Dates: end: 201710

REACTIONS (4)
  - Oropharyngeal pain [Not Recovered/Not Resolved]
  - Unevaluable event [Recovering/Resolving]
  - Feeling abnormal [Recovering/Resolving]
  - Arthralgia [Not Recovered/Not Resolved]
